FAERS Safety Report 23302207 (Version 1)
Quarter: 2023Q4

REPORT INFORMATION
  Report Type: Spontaneous
  Country: DE (occurrence: DE)
  Receive Date: 20231215
  Receipt Date: 20231215
  Transmission Date: 20240109
  Serious: Yes (Other)
  Sender: FDA-Public Use
  Company Number: DE-PFIZER INC-202300441015

PATIENT
  Age: 88 Year
  Sex: Male

DRUGS (1)
  1. VYNDAQEL [Suspect]
     Active Substance: TAFAMIDIS MEGLUMINE
     Dosage: UNK, 1X/DAY

REACTIONS (4)
  - Erysipelas [Unknown]
  - Gout [Unknown]
  - Joint swelling [Unknown]
  - Arthritis [Unknown]
